FAERS Safety Report 13742074 (Version 1)
Quarter: 2017Q3

REPORT INFORMATION
  Report Type: Spontaneous
  Country: US (occurrence: US)
  Receive Date: 20170711
  Receipt Date: 20170711
  Transmission Date: 20171127
  Serious: No
  Sender: FDA-Public Use
  Company Number: US-BAYER-2017-132289

PATIENT
  Age: 73 Year
  Sex: Male
  Weight: 83.99 kg

DRUGS (5)
  1. PROTONIX [Concomitant]
     Active Substance: PANTOPRAZOLE SODIUM
     Route: 065
  2. LYCOPENE [Concomitant]
     Active Substance: LYCOPENE
  3. MIRALAX [Suspect]
     Active Substance: POLYETHYLENE GLYCOL 3350
     Indication: GASTROINTESTINAL DISORDER
     Dosage: LESS THAN 1 CAP DAILY DOSE
     Route: 048
     Dates: end: 20170710
  4. BAYER ASPIRIN [Concomitant]
     Active Substance: ASPIRIN
     Indication: ISCHAEMIC HEART DISEASE PROPHYLAXIS
  5. LECITHIN [Concomitant]
     Active Substance: LECITHIN

REACTIONS (3)
  - Circumstance or information capable of leading to medication error [Unknown]
  - Underdose [Unknown]
  - Product use issue [Unknown]
